FAERS Safety Report 19878066 (Version 2)
Quarter: 2022Q2

REPORT INFORMATION
  Report Type: Spontaneous
  Country: ES (occurrence: ES)
  Receive Date: 20210924
  Receipt Date: 20220405
  Transmission Date: 20220721
  Serious: Yes (Other)
  Sender: FDA-Public Use
  Company Number: ES-AEMPS-999123

PATIENT

DRUGS (5)
  1. VALGANCICLOVIR [Suspect]
     Active Substance: VALGANCICLOVIR
     Indication: Product used for unknown indication
     Dosage: 280 MILLIGRAM, QD (ONCE IN 24 HOURS)
     Route: 048
     Dates: start: 20210331, end: 20210602
  2. SULFAMETHOXAZOLE\TRIMETHOPRIM [Suspect]
     Active Substance: SULFAMETHOXAZOLE\TRIMETHOPRIM
     Indication: Product used for unknown indication
     Dosage: 60 MILLIGRAMM ONCE IN 48 HOURS
     Route: 048
     Dates: start: 20210412, end: 20210607
  3. HYDRALAZINE HYDROCHLORIDE [Suspect]
     Active Substance: HYDRALAZINE HYDROCHLORIDE
     Indication: Product used for unknown indication
     Dosage: 13.5 MILLIGRAM, TOTAL
     Route: 042
     Dates: start: 20210526, end: 20210613
  4. ESMOLOL HYDROCHLORIDE [Suspect]
     Active Substance: ESMOLOL HYDROCHLORIDE
     Indication: Product used for unknown indication
     Dosage: 2086 MILLIGRAM, QD
     Route: 041
     Dates: start: 20210518, end: 20210620
  5. GANCICLOVIR [Suspect]
     Active Substance: GANCICLOVIR
     Indication: Product used for unknown indication
     Dosage: 55 MILLIGRAM, BID
     Route: 042
     Dates: start: 20210602, end: 20210630

REACTIONS (2)
  - Hyperbilirubinaemia [Recovered/Resolved]
  - Hepatotoxicity [Recovered/Resolved]

NARRATIVE: CASE EVENT DATE: 20210610
